FAERS Safety Report 7172570-4 (Version None)
Quarter: 2010Q4

REPORT INFORMATION
  Report Type: 
  Country: None (occurrence: None)
  Receive Date: 20101217
  Receipt Date: 20100210
  Transmission Date: 20110411
  Serious: Yes (Hospitalization)
  Sender: FDA-Public Use
  Company Number: US-AMGEN-QUU389865

PATIENT

DRUGS (14)
  1. ENBREL [Suspect]
     Indication: RHEUMATOID ARTHRITIS
     Dosage: 50 MG, QWK
     Route: 058
     Dates: start: 20080428
  2. ACETYLSALICYLIC ACID SRT [Suspect]
  3. CLOPIDOGREL BISULFATE [Suspect]
  4. WARFARIN SODIUM [Suspect]
  5. METHOTREXATE [Concomitant]
     Dosage: 2.5 MG, 4 TIMES/WK
     Dates: start: 20080301
  6. LEVOTHYROXINE SODIUM [Concomitant]
  7. LOVASTATIN [Concomitant]
  8. PREDNISONE [Concomitant]
  9. ERGOCALCIFEROL [Concomitant]
  10. FOLIC ACID [Concomitant]
  11. LISINOPRIL [Concomitant]
  12. CARVEDILOL [Concomitant]
  13. CALCIUM [Concomitant]
  14. ALENDRONATE SODIUM [Concomitant]

REACTIONS (4)
  - ANIMAL SCRATCH [None]
  - HAEMATOMA [None]
  - INTERNATIONAL NORMALISED RATIO INCREASED [None]
  - MYOCARDIAL INFARCTION [None]
